FAERS Safety Report 15364811 (Version 3)
Quarter: 2018Q3

REPORT INFORMATION
  Report Type: Report from Study
  Country: US (occurrence: US)
  Receive Date: 20180910
  Receipt Date: 20180927
  Transmission Date: 20181010
  Serious: No
  Sender: FDA-Public Use
  Company Number: US-ROCHE-2179283

PATIENT
  Age: 53 Year
  Sex: Female
  Weight: 82.63 kg

DRUGS (2)
  1. OCREVUS [Suspect]
     Active Substance: OCRELIZUMAB
     Indication: PRODUCT USED FOR UNKNOWN INDICATION
     Route: 065
     Dates: start: 20180810
  2. INSULIN [Concomitant]
     Active Substance: INSULIN NOS
     Indication: TYPE 2 DIABETES MELLITUS

REACTIONS (9)
  - Fatigue [Unknown]
  - Swelling [Not Recovered/Not Resolved]
  - Influenza [Unknown]
  - Fluid retention [Unknown]
  - Malaise [Unknown]
  - Pain [Not Recovered/Not Resolved]
  - Asthenia [Unknown]
  - Tremor [Unknown]
  - Peripheral swelling [Unknown]

NARRATIVE: CASE EVENT DATE: 20180810
